FAERS Safety Report 10553905 (Version 1)
Quarter: 2014Q4

REPORT INFORMATION
  Report Type: Spontaneous
  Country: US (occurrence: None)
  Receive Date: 20141023
  Receipt Date: 20141023
  Transmission Date: 20150529
  Serious: No
  Sender: FDA-Public Use
  Company Number: AP356-01019-SPO-US

PATIENT
  Age: 60 Year
  Sex: Female
  Weight: 118 kg

DRUGS (1)
  1. BELVIQ [Suspect]
     Active Substance: LORCASERIN HYDROCHLORIDE
     Indication: WEIGHT DECREASED
     Dosage: 2 IN 1 D
     Route: 048
     Dates: start: 201406, end: 20140407

REACTIONS (3)
  - Dry mouth [None]
  - Fatigue [None]
  - Constipation [None]

NARRATIVE: CASE EVENT DATE: 201406
